FAERS Safety Report 4645665-4 (Version None)
Quarter: 2005Q2

REPORT INFORMATION
  Report Type: 
  Country: None (occurrence: None)
  Receive Date: 20050331
  Receipt Date: 20050222
  Transmission Date: 20051028
  Serious: No
  Sender: FDA-Public Use
  Company Number: 05P-163-0291542-00

PATIENT
  Age: 48 Year
  Sex: Male
  Weight: 105 kg

DRUGS (3)
  1. HUMIRA [Suspect]
     Indication: RHEUMATOID ARTHRITIS
     Dosage: 40 MG, 1 IN 2 WK, SUBCUTANEOUS
     Route: 058
     Dates: start: 20040101
  2. NAPROXEN SODIUM [Concomitant]
  3. PARACETAMOL [Concomitant]

REACTIONS (4)
  - HYPOAESTHESIA [None]
  - HYPOTONIA [None]
  - PAIN IN EXTREMITY [None]
  - POLLAKIURIA [None]
